FAERS Safety Report 19714986 (Version 2)
Quarter: 2022Q3

REPORT INFORMATION
  Report Type: Report from Study
  Country: IN (occurrence: IN)
  Receive Date: 20210818
  Receipt Date: 20220906
  Transmission Date: 20221026
  Serious: Yes (Other)
  Sender: FDA-Public Use
  Company Number: IN-NOVARTISPH-NVSC2021IN181877

PATIENT
  Age: 49 Year
  Sex: Female

DRUGS (4)
  1. CERITINIB [Suspect]
     Active Substance: CERITINIB
     Indication: Non-small cell lung cancer
     Dosage: 450 MG, BID
     Route: 065
     Dates: start: 20200520, end: 20200817
  2. CERITINIB [Suspect]
     Active Substance: CERITINIB
     Dosage: 300 MG, BID
     Route: 065
     Dates: start: 20200818, end: 20201005
  3. CERITINIB [Suspect]
     Active Substance: CERITINIB
     Dosage: 450 MG, BID
     Route: 065
     Dates: start: 20201006, end: 20210712
  4. CERITINIB [Suspect]
     Active Substance: CERITINIB
     Dosage: 450 MG, QD
     Route: 065
     Dates: start: 20200520, end: 20220712

REACTIONS (3)
  - Hepatitis B [Unknown]
  - Non-small cell lung cancer [Not Recovered/Not Resolved]
  - Malignant neoplasm progression [Not Recovered/Not Resolved]

NARRATIVE: CASE EVENT DATE: 20210712
